FAERS Safety Report 17042764 (Version 1)
Quarter: 2019Q4

REPORT INFORMATION
  Report Type: Spontaneous
  Country: US (occurrence: US)
  Receive Date: 20191017
  Receipt Date: 20191017
  Transmission Date: 20200122
  Serious: Yes (Other)
  Sender: FDA-Public Use
  Company Number: None

PATIENT
  Age: 46 Year
  Sex: Female
  Weight: 67.5 kg

DRUGS (9)
  1. ROCURONIUM BROMIDE INJECTION [Suspect]
     Active Substance: ROCURONIUM BROMIDE
     Route: 042
     Dates: start: 20191001
  2. MIDAZOLAM [Concomitant]
     Active Substance: MIDAZOLAM HYDROCHLORIDE
  3. LIDOCAINE 100 MG IVP [Concomitant]
  4. DEXAMETHASONE 4 MG IV [Concomitant]
  5. LACTATED RINGERS SOLUTION [Concomitant]
     Active Substance: CALCIUM CHLORIDE\POTASSIUM CHLORIDE\SODIUM CHLORIDE\SODIUM LACTATE
  6. DEXMEDETOMIDINE. [Concomitant]
     Active Substance: DEXMEDETOMIDINE
  7. ROCURONIUM BROMIDE INJECTION [Suspect]
     Active Substance: ROCURONIUM BROMIDE
     Indication: PARALYSIS
     Route: 042
     Dates: start: 20191001
  8. FENTANYL. [Concomitant]
     Active Substance: FENTANYL
  9. PROPOFOL. [Concomitant]
     Active Substance: PROPOFOL

REACTIONS (2)
  - Drug ineffective [None]
  - Product substitution issue [None]

NARRATIVE: CASE EVENT DATE: 20191001
